FAERS Safety Report 8580163-7 (Version None)
Quarter: 2012Q3

REPORT INFORMATION
  Report Type: 
  Country: None (occurrence: None)
  Receive Date: 20120808
  Receipt Date: 20120724
  Transmission Date: 20120928
  Serious: Yes (Hospitalization)
  Sender: FDA-Public Use
  Company Number: US-TEVA-350115USA

PATIENT
  Sex: Female
  Weight: 72.64 kg

DRUGS (1)
  1. PLAN B ONE-STEP [Suspect]
     Indication: POST COITAL CONTRACEPTION
     Dosage: 1.5 MILLIGRAM DAILY;
     Route: 048
     Dates: start: 20120701, end: 20120701

REACTIONS (7)
  - INSOMNIA [None]
  - NECK PAIN [None]
  - NUCHAL RIGIDITY [None]
  - MUSCLE SPASMS [None]
  - ABDOMINAL PAIN LOWER [None]
  - MENSTRUATION IRREGULAR [None]
  - MUSCULOSKELETAL STIFFNESS [None]
